FAERS Safety Report 5370461-2 (Version None)
Quarter: 2007Q2

REPORT INFORMATION
  Report Type: 
  Country: None (occurrence: None)
  Receive Date: 20070626
  Receipt Date: 20070321
  Transmission Date: 20071010
  Serious: No
  Sender: FDA-Public Use
  Company Number: US-AMGEN-US215967

PATIENT
  Sex: Female

DRUGS (6)
  1. ARANESP [Suspect]
     Route: 065
     Dates: start: 20060101
  2. PROCRIT [Suspect]
     Indication: MYELODYSPLASTIC SYNDROME
     Route: 065
  3. TOPROL-XL [Concomitant]
     Route: 065
  4. SYNTHROID [Concomitant]
     Route: 065
  5. PLAVIX [Concomitant]
     Route: 065
  6. MULTIVITAMIN [Concomitant]
     Route: 065

REACTIONS (2)
  - DRUG INEFFECTIVE [None]
  - HYPOAESTHESIA [None]
